FAERS Safety Report 16689487 (Version 1)
Quarter: 2019Q3

REPORT INFORMATION
  Report Type: Spontaneous
  Country: US (occurrence: US)
  Receive Date: 20190809
  Receipt Date: 20190809
  Transmission Date: 20191004
  Serious: Yes (Other)
  Sender: FDA-Public Use
  Company Number: US-SA-2019SA210417

PATIENT
  Age: 85 Year
  Sex: Female
  Weight: 52 kg

DRUGS (8)
  1. ELIQUIS [Suspect]
     Active Substance: APIXABAN
     Indication: STENT PLACEMENT
     Dosage: 2.5 MG, BID (2X/DAY) (TWICE A DAY BY MOUTH WITH FOOD IN MORNING AND AFTERNOON)
     Route: 048
     Dates: start: 20180627
  2. CLOPIDOGREL BISULFATE. [Suspect]
     Active Substance: CLOPIDOGREL BISULFATE
     Indication: PRODUCT USED FOR UNKNOWN INDICATION
     Dosage: 75 MG, QD
     Route: 048
     Dates: start: 20180627, end: 201906
  3. SIMVASTATIN. [Concomitant]
     Active Substance: SIMVASTATIN
     Indication: BLOOD CHOLESTEROL
  4. METOPROLOL. [Concomitant]
     Active Substance: METOPROLOL
     Indication: BLOOD PRESSURE ABNORMAL
     Dosage: UNK
     Dates: start: 201802
  5. PLAVIX [Suspect]
     Active Substance: CLOPIDOGREL BISULFATE
     Indication: STENT PLACEMENT
     Dosage: UNK UNK, UNK
     Route: 065
  6. EXEMESTANE. [Suspect]
     Active Substance: EXEMESTANE
     Indication: HORMONE THERAPY
     Dosage: 25 MG, QD
     Route: 048
     Dates: start: 20190616
  7. IBRANCE [Suspect]
     Active Substance: PALBOCICLIB
     Indication: CHEMOTHERAPY
     Dosage: 100 MG, Q3W
     Route: 048
     Dates: start: 20190616
  8. VITAMIN K [VITAMIN K NOS] [Concomitant]

REACTIONS (7)
  - Haemorrhage [Unknown]
  - Malaise [Unknown]
  - Disease progression [Unknown]
  - Nausea [Unknown]
  - Coagulation time prolonged [Unknown]
  - Contusion [Not Recovered/Not Resolved]
  - Asthenia [Unknown]

NARRATIVE: CASE EVENT DATE: 2019
